FAERS Safety Report 10748968 (Version 2)
Quarter: 2015Q2

REPORT INFORMATION
  Report Type: Spontaneous
  Country: US (occurrence: None)
  Receive Date: 20150120
  Receipt Date: 20150420
  Transmission Date: 20150821
  Serious: No
  Sender: FDA-Public Use
  Company Number: AEGR000827

PATIENT
  Age: 71 Year
  Sex: Female
  Weight: 63.9 kg

DRUGS (13)
  1. RAMIPRIL (RAMIPRIL) [Concomitant]
     Active Substance: RAMIPRIL
  2. JUXTAPID [Suspect]
     Active Substance: LOMITAPIDE MESYLATE
     Indication: TYPE IIA HYPERLIPIDAEMIA
     Route: 048
     Dates: start: 20141009, end: 201412
  3. ASPIRIN (ACETYLSALICYLIC ACID) [Concomitant]
     Active Substance: ASPIRIN
  4. MULTIVITAMIN (VITAMINS NOS) [Concomitant]
     Active Substance: VITAMINS
  5. PROBIOTIC (BIFIDOBACTERIUM LACTIS) [Concomitant]
  6. METOPROLOL (METOPROLOL TARTRATE) [Concomitant]
     Active Substance: METOPROLOL TARTRATE
  7. VITAMIN D (COLECALCIFEROL) [Concomitant]
  8. VITAMIN B12 (COBAMAMIDE) [Concomitant]
  9. IODINE SUPPLEMENT (IODINE, MINERALS NOS, TOCOPHEROL) [Concomitant]
  10. MAGNESIUM W/ZINC (MAGNESIUM W/ZINC) [Concomitant]
  11. PLAVIX (CLOPIDOGREL BISULFATE) [Concomitant]
  12. BONE UP (ASCORBIC ACID, COLECALCIFEROL, COPPER GLUCONATE, CYANOCOBALAMIN, DURAPATITE, FOLIC ACID, GLUCOSAMINE HYDROCHLORIDE, MAGNESIUM OXIDE, MANGANSE SULFATE, PHYTOMENADIONE, SODIUM BORATE DECAHYDRATE, ZINC AMINO ACID CHELATE) [Concomitant]
  13. COENZYME Q10 (UBIDECARENONE) [Concomitant]

REACTIONS (11)
  - Weight decreased [None]
  - Feeling abnormal [None]
  - Fatigue [None]
  - Urinary tract infection [None]
  - Gastrooesophageal reflux disease [None]
  - Blood cholesterol increased [None]
  - Dyspepsia [None]
  - Low density lipoprotein increased [None]
  - Vision blurred [None]
  - Therapy cessation [None]
  - Abdominal pain upper [None]

NARRATIVE: CASE EVENT DATE: 20141011
